FAERS Safety Report 6595654-8 (Version None)
Quarter: 2010Q1

REPORT INFORMATION
  Report Type: 
  Country: None (occurrence: None)
  Receive Date: 20100222
  Receipt Date: 20100222
  Transmission Date: 20100710
  Serious: Yes (Hospitalization)
  Sender: FDA-Public Use
  Company Number: None

PATIENT
  Sex: Male
  Weight: 80 kg

DRUGS (14)
  1. COUMADIN [Suspect]
     Indication: AORTIC VALVE REPLACEMENT
     Dosage: 5MG DAILY X 6.25MG TIF QD PO
     Route: 048
     Dates: start: 19981201
  2. TARCEVA [Suspect]
     Dosage: 150MG QD PO
     Route: 048
     Dates: start: 20091111
  3. AUGMENTIN [Concomitant]
  4. DEXAMETHASONE [Concomitant]
  5. METOPROLOL TARTRATE [Concomitant]
  6. HYZAOR [Concomitant]
  7. DILTIAZEM HCL [Concomitant]
  8. SIMVASTATIN [Concomitant]
  9. ADVAIR DISKUS 100/50 [Concomitant]
  10. ALBUTEROL SULFATE AUTOHALER [Concomitant]
  11. PANTOPRAZOLE [Concomitant]
  12. COUMADIN [Concomitant]
  13. ERLOTINIB HYDROCHLORIDE [Concomitant]
  14. RADIATION [Concomitant]

REACTIONS (3)
  - HAEMORRHOIDS [None]
  - INTERNATIONAL NORMALISED RATIO INCREASED [None]
  - RECTAL HAEMORRHAGE [None]
